FAERS Safety Report 11446942 (Version 1)
Quarter: 2015Q3

REPORT INFORMATION
  Report Type: Spontaneous
  Country: US (occurrence: US)
  Receive Date: 20150831
  Receipt Date: 20150831
  Transmission Date: 20151125
  Serious: No
  Sender: FDA-Public Use
  Company Number: US-ELI_LILLY_AND_COMPANY-US200901002499

PATIENT
  Age: 76 Year
  Sex: Female
  Weight: 81.18 kg

DRUGS (9)
  1. METFORMIN [Concomitant]
     Active Substance: METFORMIN HYDROCHLORIDE
     Dosage: 1000 MG, EACH EVENING
  2. TENORMIN [Concomitant]
     Active Substance: ATENOLOL
     Dosage: 50 MG, EACH MORNING
  3. NORVASC [Concomitant]
     Active Substance: AMLODIPINE BESYLATE
     Dosage: 5 MG, EACH MORNING
  4. ASA [Concomitant]
     Active Substance: ASPIRIN
     Dosage: UNK, DAILY (1/D)
  5. CYMBALTA [Suspect]
     Active Substance: DULOXETINE HYDROCHLORIDE
     Indication: DIABETIC NEUROPATHY
     Dosage: 30 MG, DAILY (1/D)
     Dates: start: 20070522
  6. CYMBALTA [Suspect]
     Active Substance: DULOXETINE HYDROCHLORIDE
     Dosage: 60 MG, DAILY (1/D)
     Dates: end: 20081016
  7. AVAPRO [Concomitant]
     Active Substance: IRBESARTAN
     Dosage: 75 MG, EACH MORNING
  8. LEVOXYL [Concomitant]
     Active Substance: LEVOTHYROXINE SODIUM
  9. ZETIA [Concomitant]
     Active Substance: EZETIMIBE
     Dosage: 10 MG, EACH EVENING

REACTIONS (5)
  - Pain [Unknown]
  - Asthenia [Recovering/Resolving]
  - Depressive symptom [Unknown]
  - Blood sodium decreased [Recovering/Resolving]
  - Sluggishness [Unknown]

NARRATIVE: CASE EVENT DATE: 20081016
